FAERS Safety Report 8575271-0 (Version None)
Quarter: 2012Q3

REPORT INFORMATION
  Report Type: 
  Country: None (occurrence: None)
  Receive Date: 20120807
  Receipt Date: 20120807
  Transmission Date: 20120928
  Serious: Yes (Other)
  Sender: FDA-Public Use
  Company Number: US-PFIZER INC-2012182878

PATIENT
  Age: 51 Year
  Sex: Female
  Weight: 114.74 kg

DRUGS (13)
  1. POTASSIUM [Suspect]
     Dosage: UNK
     Dates: end: 20120701
  2. MAGNESIUM [Suspect]
     Dosage: UNK
     Dates: end: 20120701
  3. MAGNESIUM [Suspect]
     Dosage: UNK
     Dates: start: 20120701
  4. METFORMIN [Concomitant]
     Dosage: UNK
  5. SPIRONOLACTONE [Concomitant]
     Dosage: UNK
  6. LEVOTHYROXINE [Concomitant]
     Dosage: UNK
  7. METOPROLOL [Concomitant]
     Dosage: UNK
  8. NORVASC [Concomitant]
     Dosage: UNK
  9. TIKOSYN [Suspect]
     Indication: ATRIAL FIBRILLATION
     Dosage: 0.25 MG, 2X/DAY
     Route: 048
     Dates: start: 20120723
  10. GLIPIZIDE [Concomitant]
     Dosage: UNK
  11. LOSARTAN [Concomitant]
     Dosage: UNK
  12. POTASSIUM [Suspect]
     Dosage: UNK
     Dates: start: 20120701
  13. CLONIDINE [Concomitant]
     Dosage: UNK

REACTIONS (5)
  - BLOOD MAGNESIUM DECREASED [None]
  - PRURITUS [None]
  - BLOOD POTASSIUM DECREASED [None]
  - URINARY TRACT INFECTION [None]
  - RASH [None]
